FAERS Safety Report 8089633-1 (Version None)
Quarter: 2012Q1

REPORT INFORMATION
  Report Type: 
  Country: None (occurrence: None)
  Receive Date: 20120128
  Receipt Date: 20110707
  Transmission Date: 20120608
  Serious: No
  Sender: FDA-Public Use
  Company Number: US-ABBOTT-11P-163-0837816-00

PATIENT
  Sex: Male
  Weight: 90.8 kg

DRUGS (4)
  1. OMEPRAZOLE [Concomitant]
     Indication: GASTROOESOPHAGEAL REFLUX DISEASE
  2. HUMIRA [Suspect]
     Indication: PSORIASIS
     Dosage: ONCE
     Route: 058
     Dates: start: 20110615, end: 20110615
  3. HUMIRA [Suspect]
     Dosage: OMCE
     Route: 058
     Dates: start: 20110622, end: 20110622
  4. ZYRTEC [Concomitant]
     Indication: PRODUCT USED FOR UNKNOWN INDICATION

REACTIONS (2)
  - PHARYNGEAL OEDEMA [None]
  - TONGUE DISORDER [None]
